FAERS Safety Report 24272435 (Version 2)
Quarter: 2025Q2

REPORT INFORMATION
  Report Type: Report from Study
  Country: US (occurrence: US)
  Receive Date: 20240902
  Receipt Date: 20250618
  Transmission Date: 20250717
  Serious: Yes (Congenital Anomaly, Other)
  Sender: GILEAD
  Company Number: US-GILEAD-2024-0685044

PATIENT
  Sex: Female
  Weight: 2.52 kg

DRUGS (2)
  1. EMTRICITABINE\TENOFOVIR [Suspect]
     Active Substance: EMTRICITABINE\TENOFOVIR
     Indication: HIV infection
     Dosage: 1 DOSAGE FORM, QD
     Route: 064
     Dates: start: 20240201
  2. TIVICAY [Suspect]
     Active Substance: DOLUTEGRAVIR SODIUM
     Indication: HIV infection
     Dosage: 1 DOSAGE FORM, QD
     Route: 064
     Dates: start: 20240201

REACTIONS (8)
  - Pulmonary valve stenosis [Unknown]
  - Atrial septal defect [Unknown]
  - Patent ductus arteriosus [Unknown]
  - Right-to-left cardiac shunt [Unknown]
  - Congenital syphilis [Unknown]
  - Congenital toxoplasmosis [Unknown]
  - Renal hypoplasia [Unknown]
  - Foetal exposure during pregnancy [Recovered/Resolved]
